FAERS Safety Report 16751740 (Version 1)
Quarter: 2019Q3

REPORT INFORMATION
  Report Type: Spontaneous
  Country: US (occurrence: US)
  Receive Date: 20190828
  Receipt Date: 20190828
  Transmission Date: 20191005
  Serious: Yes (Other)
  Sender: FDA-Public Use
  Company Number: US-TEVA-2019-US-1098465

PATIENT
  Sex: Female

DRUGS (2)
  1. WARFARIN SODIUM TEVA [Suspect]
     Active Substance: WARFARIN SODIUM
     Dosage: MONDAYS AND WEDNESDAYS
  2. WARFARIN SODIUM TEVA [Suspect]
     Active Substance: WARFARIN SODIUM
     Dosage: EVERY DAY EXCEPT MONDAYS AND WEDNESDAYS

REACTIONS (1)
  - Coagulation time prolonged [Unknown]
